FAERS Safety Report 17210224 (Version 1)
Quarter: 2019Q4

REPORT INFORMATION
  Report Type: Spontaneous
  Country: NL (occurrence: NL)
  Receive Date: 20191227
  Receipt Date: 20191227
  Transmission Date: 20200122
  Serious: Yes (Other)
  Sender: FDA-Public Use
  Company Number: NL-BRISTOL-MYERS SQUIBB COMPANY-BMS-2019-121207

PATIENT
  Age: 78 Year
  Sex: Female

DRUGS (1)
  1. HYDREA [Suspect]
     Active Substance: HYDROXYUREA
     Indication: BONE CANCER
     Dosage: 1 CAPSULE (1X OR 2X A DAY)
     Route: 048
     Dates: end: 201910

REACTIONS (2)
  - Therapeutic response decreased [Unknown]
  - Fatigue [Unknown]
